FAERS Safety Report 25524249 (Version 1)
Quarter: 2025Q3

REPORT INFORMATION
  Report Type: Spontaneous
  Country: IN (occurrence: IN)
  Receive Date: 20250707
  Receipt Date: 20250707
  Transmission Date: 20251021
  Serious: Yes (Life-Threatening, Other)
  Sender: PFIZER
  Company Number: IN-PFIZER INC-PV202500078700

PATIENT
  Age: 22 Year
  Sex: Female

DRUGS (3)
  1. METHYLPREDNISOLONE SODIUM SUCCINATE [Suspect]
     Active Substance: METHYLPREDNISOLONE SODIUM SUCCINATE
     Indication: Encephalitis autoimmune
     Route: 042
  2. LACOSAMIDE [Concomitant]
     Active Substance: LACOSAMIDE
     Indication: Encephalitis
     Dosage: 200 MG, DAILY
  3. OXCARBAZEPINE [Concomitant]
     Active Substance: OXCARBAZEPINE
     Indication: Encephalitis
     Dosage: 900 MG, DAILY

REACTIONS (1)
  - Drug ineffective [Unknown]
